FAERS Safety Report 6981427-0 (Version None)
Quarter: 2010Q3

REPORT INFORMATION
  Report Type: 
  Country: None (occurrence: None)
  Receive Date: 20100914
  Receipt Date: 20100112
  Transmission Date: 20110219
  Serious: No
  Sender: FDA-Public Use
  Company Number: US-BRISTOL-MYERS SQUIBB COMPANY-14932008

PATIENT
  Age: 41 Year
  Sex: Male

DRUGS (1)
  1. MEGESTROL ACETATE [Suspect]
     Indication: WEIGHT DECREASED
     Dosage: STRENGTH 40MG/ML
     Route: 048

REACTIONS (1)
  - SPERM COUNT DECREASED [None]
